FAERS Safety Report 9216127 (Version 2)
Quarter: 2013Q2

REPORT INFORMATION
  Report Type: Spontaneous
  Country: US (occurrence: US)
  Receive Date: 20130408
  Receipt Date: 20130510
  Transmission Date: 20140414
  Serious: No
  Sender: FDA-Public Use
  Company Number: US-009507513-1304USA002255

PATIENT
  Age: 55 Year
  Sex: Male
  Weight: 81.63 kg

DRUGS (6)
  1. PEGINTRON [Suspect]
     Dosage: REDIPEN120 MCG/0.5 ML
     Route: 058
  2. RIBAVIRIN [Suspect]
     Dosage: 200 MG, BID
     Route: 048
  3. TELAPREVIR [Suspect]
     Dosage: INCIVEK
  4. ADVIL [Concomitant]
     Dosage: UNK
  5. GINSENG (UNSPECIFIED) [Concomitant]
     Dosage: UNK
  6. METAMUCIL [Concomitant]

REACTIONS (8)
  - Pallor [Unknown]
  - Asthenia [Unknown]
  - Dyspnoea [Unknown]
  - Cough [Recovered/Resolved]
  - Proctalgia [Recovered/Resolved]
  - Anal pruritus [Recovered/Resolved]
  - Rectal haemorrhage [Recovered/Resolved]
  - Blood uric acid increased [Recovered/Resolved]
